FAERS Safety Report 4913507-5 (Version None)
Quarter: 2006Q1

REPORT INFORMATION
  Report Type: 
  Country: None (occurrence: None)
  Receive Date: 20060210
  Receipt Date: 20060122
  Transmission Date: 20060701
  Serious: Yes (Hospitalization, Other)
  Sender: FDA-Public Use
  Company Number: 6020013F

PATIENT
  Age: 44 Year
  Sex: Male

DRUGS (6)
  1. NIASPAN [Suspect]
     Dosage: 1000 MG QD PO
     Route: 048
     Dates: start: 20051220
  2. SIMVASTATIN [Concomitant]
  3. ISOSORBIDE MONONITRATE [Concomitant]
  4. CLOPIDOGREL BISULFATE [Concomitant]
  5. LANSOPRAZOLE [Concomitant]
  6. ACETYLSALICYLIC ACID SRT [Concomitant]

REACTIONS (5)
  - ANGINA PECTORIS [None]
  - ASTHENIA [None]
  - CARDIAC VALVE DISEASE [None]
  - CARDIOMYOPATHY [None]
  - PAIN [None]
